FAERS Safety Report 9234929 (Version 3)
Quarter: 2013Q2

REPORT INFORMATION
  Report Type: Spontaneous
  Country: US (occurrence: US)
  Receive Date: 20130416
  Receipt Date: 20130603
  Transmission Date: 20140414
  Serious: Yes (Other)
  Sender: FDA-Public Use
  Company Number: US-BAYER-2013-048067

PATIENT
  Age: 86 Year
  Sex: Male
  Weight: 64.41 kg

DRUGS (29)
  1. XARELTO [Suspect]
     Indication: CEREBROVASCULAR ACCIDENT PROPHYLAXIS
     Dosage: 20 MG, QD
     Route: 048
     Dates: start: 20130405
  2. XARELTO [Interacting]
     Indication: ATRIAL FIBRILLATION
  3. ACETYLSALICYLIC ACID({=100 MG) [Interacting]
     Dosage: 81 MG, UNK
     Route: 048
  4. ATENOLOL [Concomitant]
     Indication: BLOOD PRESSURE ABNORMAL
     Dosage: 25 MG, BID
     Route: 048
     Dates: end: 20130429
  5. ATENOLOL [Concomitant]
     Indication: BLOOD PRESSURE ABNORMAL
  6. PAROXETINE [Concomitant]
     Indication: DEPRESSION
     Dosage: UNK
     Route: 065
  7. PAROXETINE [Concomitant]
     Indication: DEPRESSION
  8. TORSEMIDE [Concomitant]
     Indication: DIURETIC THERAPY
     Dosage: UNK
     Route: 065
  9. TORSEMIDE [Concomitant]
     Indication: DIURETIC THERAPY
     Dosage: 10 MG, QD
  10. AMLODIPINE [Concomitant]
     Indication: BLOOD PRESSURE ABNORMAL
     Dosage: UNK
     Route: 065
  11. AMLODIPINE [Concomitant]
     Indication: BLOOD PRESSURE ABNORMAL
     Dosage: 5 MG, QD
     Dates: end: 20130429
  12. OMEPRAZOLE [Concomitant]
     Indication: GASTROOESOPHAGEAL REFLUX DISEASE
     Dosage: UNK
     Route: 065
  13. OMEPRAZOLE [Concomitant]
     Indication: GASTROOESOPHAGEAL REFLUX DISEASE
     Dosage: 20 MG, QD
  14. ROSUVASTATIN [Concomitant]
     Indication: BLOOD CHOLESTEROL ABNORMAL
     Dosage: UNK
     Route: 065
  15. ROSUVASTATIN [Concomitant]
     Indication: BLOOD CHOLESTEROL ABNORMAL
     Dosage: 40 MG, UNK
  16. OXYCONTIN [Concomitant]
     Indication: PAIN
     Dosage: UNK
     Route: 065
  17. OXYCONTIN [Concomitant]
     Indication: PAIN
     Dosage: 40 MG, QD
  18. OXYCONTIN [Concomitant]
     Indication: PAIN
     Route: 065
  19. PRANDIN [Concomitant]
     Indication: TYPE 2 DIABETES MELLITUS
     Dosage: UNK
     Route: 065
  20. PRANDIN [Concomitant]
     Indication: TYPE 2 DIABETES MELLITUS
     Dosage: 2 MG, UNK
  21. LEVEMIR [Concomitant]
     Indication: TYPE 2 DIABETES MELLITUS
     Dosage: UNK
     Route: 065
  22. LEVEMIR [Concomitant]
     Indication: TYPE 2 DIABETES MELLITUS
     Dosage: 12 IU, QD
  23. CALCIUM W/VITAMIN D NOS [Concomitant]
     Dosage: 600 MG, QD
     Route: 065
  24. VITAMIN B [Concomitant]
     Route: 065
  25. GLUCOSAMINE [Concomitant]
     Route: 065
  26. METAMUCIL [Concomitant]
     Route: 065
  27. FOLIC ACID [Concomitant]
     Dosage: 500 MG, QD
     Route: 065
  28. DOXAPRAM [Concomitant]
     Dosage: 5 MG, UNK
     Route: 065
  29. ECASA [Concomitant]
     Dosage: 2 MG, QD
     Route: 065

REACTIONS (5)
  - Contusion [Recovering/Resolving]
  - Blood blister [Not Recovered/Not Resolved]
  - Dyspnoea exertional [Unknown]
  - Ecchymosis [Unknown]
  - Fatigue [Not Recovered/Not Resolved]
